FAERS Safety Report 9494165 (Version 2)
Quarter: 2013Q3

REPORT INFORMATION
  Report Type: Report from Study
  Country: IL (occurrence: IL)
  Receive Date: 20130903
  Receipt Date: 20130910
  Transmission Date: 20140515
  Serious: Yes (Life-Threatening, Hospitalization)
  Sender: FDA-Public Use
  Company Number: PHHY2013IL095144

PATIENT
  Age: 55 Year
  Sex: Male

DRUGS (8)
  1. TASIGNA [Suspect]
     Dosage: 400 MG, DAILY
     Route: 048
  2. ASPIRIN [Concomitant]
     Dosage: 100 MG
  3. PLAVIX [Concomitant]
     Dosage: 75 MG
  4. IKAPRESS [Concomitant]
     Dosage: 240 MG
  5. FAMO [Concomitant]
     Dosage: 40 MG
  6. LIPITOR [Concomitant]
     Dosage: 40 MG
  7. TRITACE [Concomitant]
     Dosage: 2.5 MG
  8. ARIXTRA [Concomitant]
     Dosage: 2.5 MG
     Route: 058

REACTIONS (3)
  - Myocardial infarction [Recovering/Resolving]
  - Chest pain [Recovering/Resolving]
  - Feeling abnormal [Recovering/Resolving]
